FAERS Safety Report 11860061 (Version 2)
Quarter: 2016Q1

REPORT INFORMATION
  Report Type: Spontaneous
  Country: IN (occurrence: IN)
  Receive Date: 20151222
  Receipt Date: 20160120
  Transmission Date: 20160526
  Serious: Yes (Death, Life-Threatening)
  Sender: FDA-Public Use
  Company Number: IN-BIOTEST-T 855/15

PATIENT
  Age: 2 Year
  Sex: Male

DRUGS (2)
  1. ANTIBIOTICS [Concomitant]
     Active Substance: UNSPECIFIED INGREDIENT
     Indication: PNEUMONIA
     Route: 042
  2. IVIG (NOT BIOTEST) [Suspect]
     Active Substance: HUMAN IMMUNOGLOBULIN G
     Indication: KAWASAKI^S DISEASE
     Route: 041
     Dates: start: 200804, end: 200804

REACTIONS (4)
  - Hypoxia [Fatal]
  - Seizure [Recovered/Resolved]
  - Pneumonia aspiration [Fatal]
  - Acute respiratory distress syndrome [Fatal]
